FAERS Safety Report 23352203 (Version 1)
Quarter: 2023Q4

REPORT INFORMATION
  Report Type: Spontaneous
  Country: US (occurrence: US)
  Receive Date: 20231229
  Receipt Date: 20231229
  Transmission Date: 20240110
  Serious: Yes (Other)
  Sender: FDA-Public Use
  Company Number: US-BEH-2023166875

PATIENT
  Age: 55 Year
  Sex: Female

DRUGS (6)
  1. HUMATE-P [Suspect]
     Active Substance: HUMAN COAGULATION FACTOR VIII/VON WILLEBRAND FACTOR COMPLEX
     Indication: Von Willebrand^s disease
     Dosage: 4000 INTERNATIONAL UNIT, PRN (ONCE A DAY EVERY 24 HRS IF NEEDED)
     Route: 042
  2. HUMATE-P [Suspect]
     Active Substance: HUMAN COAGULATION FACTOR VIII/VON WILLEBRAND FACTOR COMPLEX
     Indication: Haemorrhage
  3. AMINOCAPROIC ACID [Concomitant]
     Active Substance: AMINOCAPROIC ACID
  4. ONDANSETRON [Concomitant]
     Active Substance: ONDANSETRON
  5. TRAZODONE HCL [Concomitant]
     Active Substance: TRAZODONE HYDROCHLORIDE
  6. ZOLOFT [Concomitant]
     Active Substance: SERTRALINE HYDROCHLORIDE

REACTIONS (1)
  - Cardiac fibrillation [Unknown]

NARRATIVE: CASE EVENT DATE: 20230926
